FAERS Safety Report 14151096 (Version 1)
Quarter: 2017Q4

REPORT INFORMATION
  Report Type: Report from Study
  Country: None (occurrence: ZA)
  Receive Date: 20171102
  Receipt Date: 20171102
  Transmission Date: 20180321
  Serious: Yes (Hospitalization)
  Sender: FDA-Public Use
  Company Number: ZA-ABBVIE-17K-143-2091220-00

PATIENT
  Sex: Female
  Weight: 93.4 kg

DRUGS (1)
  1. HUMIRA [Suspect]
     Active Substance: ADALIMUMAB
     Indication: ANKYLOSING SPONDYLITIS
     Route: 058
     Dates: start: 20170726, end: 2017

REACTIONS (3)
  - Pyrexia [Unknown]
  - Upper respiratory tract infection [Unknown]
  - Arthropod bite [Unknown]

NARRATIVE: CASE EVENT DATE: 2017
